FAERS Safety Report 6795509-X (Version None)
Quarter: 2010Q2

REPORT INFORMATION
  Report Type: 
  Country: None (occurrence: None)
  Receive Date: 20100625
  Receipt Date: 20100617
  Transmission Date: 20101027
  Serious: Yes (Hospitalization)
  Sender: FDA-Public Use
  Company Number: US-GENZYME-THYM-1001559

PATIENT

DRUGS (1)
  1. THYMOGLOBULIN [Suspect]
     Indication: PROPHYLAXIS AGAINST TRANSPLANT REJECTION
     Dosage: UNK
     Route: 042

REACTIONS (4)
  - OXYGEN SATURATION DECREASED [None]
  - PYREXIA [None]
  - SERUM SICKNESS [None]
  - TACHYCARDIA [None]
